FAERS Safety Report 6938289-7 (Version None)
Quarter: 2010Q3

REPORT INFORMATION
  Report Type: 
  Country: None (occurrence: None)
  Receive Date: 20100824
  Receipt Date: 20100819
  Transmission Date: 20110219
  Serious: Yes (Life-Threatening)
  Sender: FDA-Public Use
  Company Number: JP-SANOFI-AVENTIS-2010SA010757

PATIENT
  Age: 85 Year
  Sex: Female
  Weight: 55 kg

DRUGS (19)
  1. PLAVIX [Suspect]
     Indication: ANGINA UNSTABLE
     Route: 048
     Dates: start: 20090115, end: 20090429
  2. PLAVIX [Suspect]
     Dates: start: 20090101, end: 20090101
  3. ASPIRIN [Suspect]
     Indication: ANGINA UNSTABLE
     Route: 048
  4. GASTER D [Concomitant]
     Route: 048
     Dates: start: 20090115
  5. GASTER D [Concomitant]
     Route: 048
  6. LIPITOR [Concomitant]
     Indication: ANGINA UNSTABLE
     Route: 048
     Dates: start: 20090115
  7. GLYBURIDE [Concomitant]
     Indication: DIABETES MELLITUS
     Route: 048
  8. ADALAT [Concomitant]
     Route: 048
  9. DIOVANE [Concomitant]
     Indication: HYPERTENSION
     Route: 048
  10. FRANDOL [Concomitant]
     Indication: ANGINA UNSTABLE
     Route: 048
  11. SIGMART [Concomitant]
     Indication: ANGINA UNSTABLE
     Route: 048
  12. SELBEX [Concomitant]
     Route: 048
  13. ARTIST [Concomitant]
     Indication: ANGINA UNSTABLE
     Route: 048
     Dates: start: 20090118
  14. ZETIA [Concomitant]
     Indication: HYPERLIPIDAEMIA
     Route: 048
     Dates: start: 20090124
  15. CYTOTEC [Concomitant]
     Indication: PROPHYLAXIS
     Route: 048
     Dates: end: 20091112
  16. DEPAS [Concomitant]
     Indication: PSYCHOSOMATIC DISEASE
     Route: 048
     Dates: start: 20091203
  17. ATELEC [Concomitant]
     Indication: HYPERTENSION
     Route: 048
     Dates: start: 20091203
  18. GEFANIL [Concomitant]
     Indication: PROPHYLAXIS
     Route: 048
     Dates: start: 20100202
  19. HEPARIN [Concomitant]
     Indication: ANGINA UNSTABLE
     Route: 041
     Dates: start: 20090116, end: 20090120

REACTIONS (2)
  - CHOLANGITIS ACUTE [None]
  - SMALL INTESTINAL HAEMORRHAGE [None]
